FAERS Safety Report 5883791-2 (Version None)
Quarter: 2008Q3

REPORT INFORMATION
  Report Type: 
  Country: None (occurrence: None)
  Receive Date: 20080915
  Receipt Date: 20080910
  Transmission Date: 20090109
  Serious: Yes (Death)
  Sender: FDA-Public Use
  Company Number: FR-BRISTOL-MYERS SQUIBB COMPANY-14330443

PATIENT
  Age: 56 Year
  Sex: Male

DRUGS (12)
  1. ABILIFY [Suspect]
     Dates: start: 20080715
  2. ALPRAZOLAM [Suspect]
     Dosage: FORMULATION:TAB.
     Dates: start: 20080718
  3. AMOXICILLIN AND CLAVULANATE POTASSIUM [Suspect]
     Indication: LUNG DISORDER
     Dates: start: 20080622, end: 20080630
  4. CYAMEMAZINE [Suspect]
     Dosage: FORMULATION: TAB.
     Dates: start: 20080718
  5. AMISULPRIDE [Suspect]
     Dosage: HALF TABLET PER DAY.
  6. TROPATEPINE [Suspect]
     Dosage: FORMULATION:TAB.
  7. HYDROXYZINE [Suspect]
     Dosage: FORMULATION:TAB.
     Dates: start: 20080621
  8. LOXAPINE [Suspect]
     Dosage: FORMULATION:TAB.
     Dates: start: 20080703
  9. ACETAMINOPHEN [Concomitant]
  10. KETOPROFEN [Concomitant]
     Dosage: FORMULATION:GEL
  11. PHLOROGLUCINOL [Concomitant]
  12. ALBUTEROL SPIROS [Concomitant]

REACTIONS (5)
  - DIARRHOEA INFECTIOUS [None]
  - ENTEROCOLITIS [None]
  - LEUKOCYTOSIS [None]
  - RENAL FAILURE ACUTE [None]
  - SEPSIS [None]
